FAERS Safety Report 18574601 (Version 1)
Quarter: 2020Q4

REPORT INFORMATION
  Report Type: Spontaneous
  Country: US (occurrence: US)
  Receive Date: 20201202
  Receipt Date: 20201202
  Transmission Date: 20210114
  Serious: No
  Sender: FDA-Public Use
  Company Number: None

PATIENT
  Age: 74 Year
  Sex: Male
  Weight: 90 kg

DRUGS (1)
  1. ORITAVANCIN (ORITAVANCIN 400MG/VIL INJ) [Suspect]
     Active Substance: ORITAVANCIN
     Dates: start: 20200924, end: 20201008

REACTIONS (2)
  - Restlessness [None]
  - Back pain [None]

NARRATIVE: CASE EVENT DATE: 20201008
